FAERS Safety Report 23480818 (Version 1)
Quarter: 2024Q1

REPORT INFORMATION
  Report Type: Spontaneous
  Country: US (occurrence: US)
  Receive Date: 20240205
  Receipt Date: 20240205
  Transmission Date: 20240409
  Serious: No
  Sender: FDA-Public Use
  Company Number: US-AMRYT PHARMACEUTICALS DAC-AEGR006411

PATIENT
  Age: 6 Year
  Sex: Male
  Weight: 19.002 kg

DRUGS (6)
  1. MYALEPT [Suspect]
     Active Substance: METRELEPTIN
     Indication: Congenital generalised lipodystrophy
     Dosage: 0.6 MILLIGRAM/KILOGRAM, QD
     Dates: start: 20161201, end: 20170914
  2. MYALEPT [Suspect]
     Active Substance: METRELEPTIN
     Dosage: 0.06 MILLIGRAM/KILOGRAM, QD
     Dates: start: 20170914, end: 20220830
  3. MYALEPT [Suspect]
     Active Substance: METRELEPTIN
     Dosage: 0.04 MILLIGRAM/KILOGRAM, QD
     Dates: start: 20220831, end: 20230308
  4. MYALEPT [Suspect]
     Active Substance: METRELEPTIN
     Dosage: 0.043 MILLIGRAM/KILOGRAM, QD
     Dates: start: 20230308
  5. STERILE WATER [Concomitant]
     Active Substance: WATER
     Indication: Product used for unknown indication
  6. BACTERIOSTATIC WATER [Concomitant]
     Active Substance: WATER
     Indication: Product used for unknown indication

REACTIONS (2)
  - Pharyngitis streptococcal [Unknown]
  - Tonsillar hypertrophy [Recovered/Resolved]

NARRATIVE: CASE EVENT DATE: 20230301
